FAERS Safety Report 8970388 (Version 1)
Quarter: 2012Q4

REPORT INFORMATION
  Report Type: 
  Country: US (occurrence: US)
  Receive Date: 20121218
  Receipt Date: 20121218
  Transmission Date: 20130627
  Serious: No
  Sender: FDA-Public Use
  Company Number: US-GLAXOSMITHKLINE-A0970294A

PATIENT
  Age: 62 Year
  Sex: Female

DRUGS (4)
  1. NICORETTE [Suspect]
     Indication: EX-TOBACCO USER
     Route: 002
     Dates: start: 20120318
  2. NICOTINE [Suspect]
     Indication: EX-TOBACCO USER
     Route: 002
     Dates: end: 20120317
  3. NICODERM CQ [Suspect]
     Indication: EX-TOBACCO USER
     Route: 002
     Dates: end: 20120317
  4. NICODERM CQ [Suspect]
     Indication: EX-TOBACCO USER
     Dates: end: 20120317

REACTIONS (2)
  - Throat tightness [Recovered/Resolved]
  - Nicotine dependence [Not Recovered/Not Resolved]
